FAERS Safety Report 17997345 (Version 1)
Quarter: 2020Q3

REPORT INFORMATION
  Report Type: Spontaneous
  Country: US (occurrence: US)
  Receive Date: 20200708
  Receipt Date: 20200708
  Transmission Date: 20201103
  Serious: No
  Sender: FDA-Public Use
  Company Number: US-SUN PHARMACEUTICAL INDUSTRIES LTD-2020R1-244246

PATIENT
  Sex: Female

DRUGS (1)
  1. XELPROS [Suspect]
     Active Substance: LATANOPROST
     Indication: PRODUCT USED FOR UNKNOWN INDICATION

REACTIONS (7)
  - Eye irritation [Unknown]
  - Drug ineffective [Unknown]
  - Product dose omission issue [Unknown]
  - Product administration interrupted [Unknown]
  - Product quality issue [Unknown]
  - Headache [Unknown]
  - Illness [Unknown]
